FAERS Safety Report 8542271-6 (Version None)
Quarter: 2012Q3

REPORT INFORMATION
  Report Type: 
  Country: None (occurrence: None)
  Receive Date: 20120726
  Receipt Date: 20120723
  Transmission Date: 20120928
  Serious: No
  Sender: FDA-Public Use
  Company Number: US-PFIZER INC-2012178650

PATIENT
  Sex: Male

DRUGS (4)
  1. PLAVIX [Concomitant]
  2. SIMVASTATIN [Concomitant]
  3. ALPRAZOLAM [Suspect]
     Dosage: UNK
  4. TOPROL-XL [Concomitant]

REACTIONS (1)
  - DRUG INEFFECTIVE [None]
